FAERS Safety Report 8268894-X (Version None)
Quarter: 2012Q2

REPORT INFORMATION
  Report Type: 
  Country: None (occurrence: None)
  Receive Date: 20120409
  Receipt Date: 20120404
  Transmission Date: 20120825
  Serious: Yes (Hospitalization)
  Sender: FDA-Public Use
  Company Number: JP-TEVA-325730USA

PATIENT
  Sex: Male
  Weight: 46 kg

DRUGS (8)
  1. MAGNESIUM OXIDE [Concomitant]
     Indication: CONSTIPATION
     Route: 048
     Dates: start: 20120111
  2. SENNOSIDE A+B CALCIUM [Concomitant]
     Indication: CONSTIPATION
     Route: 048
     Dates: start: 20120111
  3. RAMOSETRON HYDROCHLORIDE [Concomitant]
     Dosage: .3 MILLIGRAM;
  4. TREANDA [Suspect]
     Indication: B-CELL LYMPHOMA
     Dosage: 90 MG/M2;
     Route: 042
     Dates: start: 20120113
  5. DEXAMETHASONE SODIUM PHOSPHATE [Concomitant]
     Indication: PROPHYLAXIS
     Dosage: 6.6 MILLIGRAM;
     Dates: start: 20120113
  6. OXYCODONE HCL [Concomitant]
     Indication: PAIN
     Dates: start: 20120111, end: 20120210
  7. ACYCLOVIR [Concomitant]
     Indication: PROPHYLAXIS
     Dosage: 200 MILLIGRAM;
     Dates: start: 20120113
  8. BACTRIM [Concomitant]
     Indication: PROPHYLAXIS
     Route: 048
     Dates: start: 20120113

REACTIONS (1)
  - MECHANICAL ILEUS [None]
